FAERS Safety Report 5599684-4 (Version None)
Quarter: 2008Q1

REPORT INFORMATION
  Report Type: 
  Country: None (occurrence: None)
  Receive Date: 20080117
  Receipt Date: 20080109
  Transmission Date: 20080703
  Serious: Yes (Hospitalization, Other)
  Sender: FDA-Public Use
  Company Number: 2008SP000618

PATIENT
  Age: 36 Year
  Sex: Male

DRUGS (1)
  1. TEMODAL [Suspect]
     Indication: METASTASES TO CENTRAL NERVOUS SYSTEM

REACTIONS (5)
  - MALIGNANT NEOPLASM PROGRESSION [None]
  - METASTASES TO RECTUM [None]
  - NEUTROPENIA [None]
  - NO THERAPEUTIC RESPONSE [None]
  - PNEUMONIA [None]
